FAERS Safety Report 22288951 (Version 1)
Quarter: 2023Q2

REPORT INFORMATION
  Report Type: Spontaneous
  Country: US (occurrence: None)
  Receive Date: 20230504
  Receipt Date: 20230504
  Transmission Date: 20230721
  Serious: Yes (Hospitalization)
  Sender: FDA-Public Use
  Company Number: None

PATIENT
  Sex: Female

DRUGS (1)
  1. JADENU [Suspect]
     Active Substance: DEFERASIROX
     Dosage: OTHER QUANTITY : 360 MG X3;?FREQUENCY : DAILY;?
     Route: 048

REACTIONS (4)
  - Abdominal discomfort [None]
  - Gastric ulcer [None]
  - Therapy interrupted [None]
  - Sickle cell anaemia with crisis [None]
